FAERS Safety Report 6022565-9 (Version None)
Quarter: 2008Q4

REPORT INFORMATION
  Report Type: 
  Country: None (occurrence: None)
  Receive Date: 20081230
  Receipt Date: 20081219
  Transmission Date: 20090506
  Serious: Yes (Hospitalization, Other)
  Sender: FDA-Public Use
  Company Number: PHHY2008JP29899

PATIENT
  Sex: Female
  Weight: 58 kg

DRUGS (8)
  1. TEGRETOL [Suspect]
     Indication: DIABETIC NEUROPATHY
     Dosage: 200MG
     Route: 048
     Dates: start: 20081021, end: 20081028
  2. TEGRETOL [Suspect]
     Indication: DIABETES MELLITUS
     Dosage: 400MG
     Route: 048
     Dates: start: 20081028, end: 20081120
  3. MELBIN [Concomitant]
     Dosage: 750 MG
     Route: 048
     Dates: start: 20081016, end: 20081120
  4. KINEDAK [Concomitant]
     Dosage: 150 MG
     Route: 048
     Dates: start: 20081031, end: 20081120
  5. CYANOCOBALAMIN [Concomitant]
     Dosage: 1500 MG
     Route: 048
     Dates: start: 20081031, end: 20081120
  6. LOCHOL [Concomitant]
     Dosage: UNK
     Dates: start: 20081023, end: 20081120
  7. PLAVIX [Concomitant]
     Dosage: 75 MG
     Route: 048
     Dates: start: 20081031, end: 20081116
  8. PLAVIX [Concomitant]
     Dosage: UNK
     Dates: start: 20081208, end: 20081210

REACTIONS (12)
  - ALANINE AMINOTRANSFERASE INCREASED [None]
  - BLOOD LACTATE DEHYDROGENASE INCREASED [None]
  - CAROTID ARTERY STENOSIS [None]
  - EOSINOPHIL COUNT INCREASED [None]
  - GAMMA-GLUTAMYLTRANSFERASE INCREASED [None]
  - HYPOAESTHESIA [None]
  - LYMPHOCYTE COUNT INCREASED [None]
  - MONOCYTE COUNT INCREASED [None]
  - NEUTROPHIL COUNT DECREASED [None]
  - RASH [None]
  - TOXIC SKIN ERUPTION [None]
  - WHITE BLOOD CELL COUNT DECREASED [None]
